FAERS Safety Report 12376750 (Version 2)
Quarter: 2016Q2

REPORT INFORMATION
  Report Type: Report from Study
  Country: US (occurrence: US)
  Receive Date: 20160517
  Receipt Date: 20160517
  Transmission Date: 20160815
  Serious: No
  Sender: FDA-Public Use
  Company Number: US-MALLINCKRODT-T201502868

PATIENT
  Age: 68 Year
  Sex: Female
  Weight: 59 kg

DRUGS (3)
  1. COUMADIN [Concomitant]
     Active Substance: WARFARIN SODIUM
  2. REPOSITORY CORTICOTROPIN INJECTION [Suspect]
     Active Substance: CORTICOTROPIN
     Dosage: 80 UNITS TWICE WEEKLY
     Route: 058
  3. REPOSITORY CORTICOTROPIN INJECTION [Suspect]
     Active Substance: CORTICOTROPIN
     Indication: NEPHROTIC SYNDROME
     Dosage: 75 UNITS, TWICE WKLY
     Route: 058
     Dates: start: 201505

REACTIONS (14)
  - Impaired healing [Unknown]
  - Eructation [Not Recovered/Not Resolved]
  - Eye swelling [Unknown]
  - Increased appetite [Unknown]
  - Weight increased [Unknown]
  - Pain of skin [Unknown]
  - Contusion [Not Recovered/Not Resolved]
  - Skin disorder [Unknown]
  - Gastrointestinal sounds abnormal [Not Recovered/Not Resolved]
  - Flatulence [Not Recovered/Not Resolved]
  - Migraine [Unknown]
  - Flatulence [Not Recovered/Not Resolved]
  - Tenderness [Not Recovered/Not Resolved]
  - Injection site bruising [Not Recovered/Not Resolved]

NARRATIVE: CASE EVENT DATE: 201505
